FAERS Safety Report 9387596 (Version 2)
Quarter: 2013Q3

REPORT INFORMATION
  Report Type: Spontaneous
  Country: US (occurrence: None)
  Receive Date: 20130702
  Receipt Date: 20130716
  Transmission Date: 20140515
  Serious: Yes (Death, Hospitalization)
  Sender: FDA-Public Use
  Company Number: 20130324

PATIENT
  Age: 48 Year
  Sex: Male
  Weight: 113.6 kg

DRUGS (15)
  1. VENOFER [Suspect]
     Indication: PRODUCT USED FOR UNKNOWN INDICATION
  2. COMBIVENT [Concomitant]
  3. GABAPENTIN [Concomitant]
  4. HYDRALAZINE HCL [Concomitant]
  5. ONOVOLOG [Concomitant]
  6. PHOSLO [Concomitant]
  7. PROTONIX [Concomitant]
  8. REGLAN [Concomitant]
  9. SENSIPAR [Concomitant]
  10. VITAMIN D3 [Concomitant]
  11. MAG-OXIDE [Concomitant]
  12. FUROSEMIDE [Concomitant]
  13. LISINOPRIL [Concomitant]
  14. ASPIRIN [Concomitant]
  15. STOOL SOFTENER CAPS [Concomitant]

REACTIONS (3)
  - Death [None]
  - Coronary artery disease [None]
  - Myocardial infarction [None]
